FAERS Safety Report 10780659 (Version 1)
Quarter: 2015Q1

REPORT INFORMATION
  Report Type: Report from Study
  Country: DE (occurrence: DE)
  Receive Date: 20150210
  Receipt Date: 20150210
  Transmission Date: 20150721
  Serious: Yes (Hospitalization)
  Sender: FDA-Public Use
  Company Number: US-ASTRAZENECA-2015SE12193

PATIENT

DRUGS (2)
  1. SYNAGIS [Suspect]
     Active Substance: PALIVIZUMAB
     Indication: ANTIVIRAL PROPHYLAXIS
     Route: 030
     Dates: start: 2014
  2. SYNAGIS [Suspect]
     Active Substance: PALIVIZUMAB
     Indication: CORONARY ARTERY DISEASE
     Route: 030
     Dates: start: 2014

REACTIONS (4)
  - Obstructive airways disorder [Unknown]
  - Oxygen saturation abnormal [Not Recovered/Not Resolved]
  - Respiratory syncytial virus test positive [Unknown]
  - Respiratory syncytial virus infection [Unknown]

NARRATIVE: CASE EVENT DATE: 201501
